FAERS Safety Report 25026406 (Version 1)
Quarter: 2025Q1

REPORT INFORMATION
  Report Type: Spontaneous
  Country: JP (occurrence: JP)
  Receive Date: 20250301
  Receipt Date: 20250301
  Transmission Date: 20250408
  Serious: Yes (Life-Threatening, Hospitalization)
  Sender: ACCORD
  Company Number: JP-MLMSERVICE-20250210-PI402850-00165-1

PATIENT
  Age: 59 Year
  Sex: Male

DRUGS (4)
  1. GEMCITABINE [Suspect]
     Active Substance: GEMCITABINE
     Indication: Pancreatic carcinoma
  2. PACLITAXEL [Suspect]
     Active Substance: PACLITAXEL
     Indication: Pancreatic carcinoma
  3. PACLITAXEL [Suspect]
     Active Substance: PACLITAXEL
     Indication: Metastases to liver
  4. GEMCITABINE [Suspect]
     Active Substance: GEMCITABINE
     Indication: Metastases to liver

REACTIONS (5)
  - Tumour lysis syndrome [Unknown]
  - Pancreatic pseudocyst [Unknown]
  - Pancreatic pseudocyst rupture [Recovered/Resolved]
  - Pancreatitis acute [Unknown]
  - Vascular pseudoaneurysm [Recovered/Resolved]
